FAERS Safety Report 21542266 (Version 3)
Quarter: 2022Q4

REPORT INFORMATION
  Report Type: Spontaneous
  Country: TW (occurrence: TW)
  Receive Date: 20221102
  Receipt Date: 20221209
  Transmission Date: 20230113
  Serious: No
  Sender: FDA-Public Use
  Company Number: TW-PFIZER INC-PV202200080703

PATIENT
  Age: 5 Year
  Sex: Male

DRUGS (1)
  1. GENOTROPIN [Suspect]
     Active Substance: SOMATROPIN
     Indication: Growth hormone deficiency
     Dosage: 0.6 MG, 1X/DAY
     Route: 058
     Dates: start: 2022

REACTIONS (3)
  - Poor quality device used [Unknown]
  - Product leakage [Unknown]
  - Device issue [Unknown]

NARRATIVE: CASE EVENT DATE: 20221009
